FAERS Safety Report 5253456-9 (Version None)
Quarter: 2007Q1

REPORT INFORMATION
  Report Type: 
  Country: None (occurrence: None)
  Receive Date: 20070301
  Receipt Date: 20070221
  Transmission Date: 20070707
  Serious: Yes (Death, Hospitalization)
  Sender: FDA-Public Use
  Company Number: RU-SHR-RU-2007-005998

PATIENT
  Age: 67 Year
  Sex: Female

DRUGS (4)
  1. FLUDARA (UNK. FORMULATION) [Suspect]
     Dosage: 25MG/M2 * 3 DAY CYCLE
     Route: 042
     Dates: start: 20060701, end: 20060101
  2. CYCLOPHOSPHAMIDE [Concomitant]
     Dosage: 300MG/M2*3 DAY CYCLE
     Route: 042
     Dates: start: 20060701
  3. NEUPOGEN [Concomitant]
     Dates: start: 20060101
  4. MABTHERA [Concomitant]
     Dates: start: 20060101

REACTIONS (7)
  - AGRANULOCYTOSIS [None]
  - ANAEMIA [None]
  - ANAEMIA HAEMOLYTIC AUTOIMMUNE [None]
  - GINGIVITIS [None]
  - MULTI-ORGAN FAILURE [None]
  - STOMATITIS [None]
  - THROMBOCYTOPENIA [None]
